FAERS Safety Report 9226074 (Version 1)
Quarter: 2013Q2

REPORT INFORMATION
  Report Type: Spontaneous
  Country: IT (occurrence: IT)
  Receive Date: 20130411
  Receipt Date: 20130411
  Transmission Date: 20140414
  Serious: Yes (Life-Threatening)
  Sender: FDA-Public Use
  Company Number: IT-JNJFOC-20130402804

PATIENT
  Age: 49 Year
  Sex: Male

DRUGS (2)
  1. SERENASE [Suspect]
     Indication: DEPRESSION
     Route: 048
     Dates: start: 20130125, end: 20130125
  2. LEXOTAN [Suspect]
     Indication: DEPRESSION
     Route: 048
     Dates: start: 20130125, end: 20130125

REACTIONS (2)
  - Sopor [Recovering/Resolving]
  - Incorrect dose administered [Unknown]
